FAERS Safety Report 8653698 (Version 5)
Quarter: 2013Q3

REPORT INFORMATION
  Report Type: Report from Study
  Country: JP (occurrence: JP)
  Receive Date: 20120709
  Receipt Date: 20130730
  Transmission Date: 20140515
  Serious: Yes (Other)
  Sender: FDA-Public Use
  Company Number: JP-VERTEX PHARMACEUTICALS INC.-AE-2012-009725

PATIENT
  Age: 63 Year
  Sex: Male

DRUGS (9)
  1. VX-950 (TELAPREVIR) [Suspect]
     Indication: CHRONIC HEPATITIS C
     Dosage: 1500 MG, QD
     Route: 048
     Dates: start: 20120621, end: 20120625
  2. REBETOL [Suspect]
     Indication: CHRONIC HEPATITIS C
     Dosage: 800 MG, QD
     Route: 048
     Dates: start: 20120621, end: 20120710
  3. REBETOL [Suspect]
     Dosage: 600 MG, QD
     Route: 048
     Dates: start: 20120711
  4. PEGINTRON [Suspect]
     Indication: CHRONIC HEPATITIS C
     Dosage: 1.3 ?G/KG, QW
     Route: 058
     Dates: start: 20120621
  5. MAINTATE [Concomitant]
     Dosage: 5 MG, QD
     Route: 048
  6. DIOVAN [Concomitant]
     Dosage: 80 MG, QD
     Route: 048
  7. CARDENALIN [Concomitant]
     Dosage: 4 MG, QD
     Route: 048
  8. GASTER D [Concomitant]
     Dosage: 20 MG, QD
     Route: 048
     Dates: start: 20120629, end: 20120710
  9. ZYLORIC [Concomitant]
     Dosage: 100 MG, QD
     Route: 048

REACTIONS (1)
  - Drug eruption [Recovered/Resolved]
